FAERS Safety Report 22242544 (Version 1)
Quarter: 2023Q2

REPORT INFORMATION
  Report Type: Spontaneous
  Country: US (occurrence: None)
  Receive Date: 20230420
  Receipt Date: 20230420
  Transmission Date: 20230722
  Serious: Yes (Hospitalization)
  Sender: FDA-Public Use
  Company Number: None

PATIENT
  Age: 61 Year
  Sex: Female

DRUGS (1)
  1. BOTOX [Suspect]
     Active Substance: ONABOTULINUMTOXINA
     Indication: Migraine
     Dosage: OTHER QUANTITY : 155 UNTS;?OTHER FREQUENCY : OTHER;?
     Route: 030
     Dates: start: 20211123

REACTIONS (3)
  - Fall [None]
  - Electrolyte imbalance [None]
  - Hyperglycaemia [None]

NARRATIVE: CASE EVENT DATE: 20230403
